FAERS Safety Report 7813821-X (Version None)
Quarter: 2011Q4

REPORT INFORMATION
  Report Type: 
  Country: None (occurrence: None)
  Receive Date: 20111014
  Receipt Date: 20111006
  Transmission Date: 20120403
  Serious: No
  Sender: FDA-Public Use
  Company Number: US-PFIZER INC-2011240364

PATIENT
  Sex: Male
  Weight: 80.726 kg

DRUGS (4)
  1. KEPPRA [Suspect]
     Indication: EPILEPSY
     Dosage: UNK
  2. PHENOBARBITAL TAB [Suspect]
     Indication: EPILEPSY
     Dosage: UNKNOWN DOSE DAILY
  3. PHENOBARBITAL TAB [Suspect]
     Dosage: 120 MG DAILY
  4. DILANTIN-125 [Suspect]
     Indication: EPILEPSY
     Dosage: 97.2 MG, DAILY
     Dates: start: 19970101

REACTIONS (10)
  - OVERDOSE [None]
  - BURNING SENSATION [None]
  - ORAL DISCOMFORT [None]
  - INSOMNIA [None]
  - RASH [None]
  - ORAL DISORDER [None]
  - TOOTHACHE [None]
  - FATIGUE [None]
  - LIP SWELLING [None]
  - GINGIVAL BLEEDING [None]
